FAERS Safety Report 16656333 (Version 1)
Quarter: 2019Q3

REPORT INFORMATION
  Report Type: Spontaneous
  Country: US (occurrence: US)
  Receive Date: 20190801
  Receipt Date: 20190801
  Transmission Date: 20191004
  Serious: No
  Sender: FDA-Public Use
  Company Number: US-PACIRA-201800105

PATIENT
  Age: 32 Year
  Sex: Female
  Weight: 62 kg

DRUGS (2)
  1. EXPAREL [Suspect]
     Active Substance: BUPIVACAINE
     Indication: SURGERY
     Dosage: 212 MG, SINGLE, FREQUENCY : SINGLE
     Dates: start: 20181005, end: 20181005
  2. LIDOCAINE. [Suspect]
     Active Substance: LIDOCAINE
     Indication: SURGERY
     Dosage: 240 MG, SINGLE, FREQUENCY : SINGLE
     Dates: start: 20181005, end: 20181005

REACTIONS (2)
  - Labelled drug-drug interaction medication error [Unknown]
  - No adverse event [Unknown]

NARRATIVE: CASE EVENT DATE: 20181005
